FAERS Safety Report 8536696-2 (Version None)
Quarter: 2012Q3

REPORT INFORMATION
  Report Type: 
  Country: None (occurrence: None)
  Receive Date: 20120725
  Receipt Date: 20120718
  Transmission Date: 20120928
  Serious: No
  Sender: FDA-Public Use
  Company Number: US-B.I. PHARMACEUTICALS,INC./RIDGEFIELD-2012-BP-16068BP

PATIENT
  Sex: Male

DRUGS (1)
  1. ZANTAC [Suspect]

REACTIONS (3)
  - DRUG EFFECT DELAYED [None]
  - DRUG INEFFECTIVE [None]
  - DRUG EFFECT DECREASED [None]
